FAERS Safety Report 18101168 (Version 1)
Quarter: 2020Q3

REPORT INFORMATION
  Report Type: Spontaneous
  Country: GB (occurrence: GB)
  Receive Date: 20200801
  Receipt Date: 20200801
  Transmission Date: 20201103
  Serious: Yes (Other)
  Sender: FDA-Public Use
  Company Number: GB-TEVA-2020-GB-1807103

PATIENT
  Age: 94 Year
  Sex: Female
  Weight: 41 kg

DRUGS (10)
  1. TRAZODONE [Concomitant]
     Active Substance: TRAZODONE HYDROCHLORIDE
     Dosage: AT BEDTIME OR SPLIT BETWEEN...UNIT DOSE: 10 ML
     Dates: start: 20200407
  2. FLUCLOXACILLIN [Concomitant]
     Active Substance: FLUCLOXACILLIN
     Dosage: 40 ML
     Dates: start: 20200708
  3. BETAMETHASONE VALERATE. [Concomitant]
     Active Substance: BETAMETHASONE VALERATE
     Dosage: 2 DOSAGE FORMS
     Dates: start: 20180322, end: 20200630
  4. LATANOPROST. [Concomitant]
     Active Substance: LATANOPROST
     Dosage: BOTH EYES, UNIT DOSE: 2GTT
     Dates: start: 20190108
  5. DERMOL [Concomitant]
     Active Substance: BENZALKONIUM CHLORIDE\CHLORHEXIDINE HYDROCHLORIDE\ISOPROPYL MYRISTATE\PARAFFIN
     Dosage: USE AS A WASH
     Dates: start: 20180117, end: 20200630
  6. MEMANTINE. [Suspect]
     Active Substance: MEMANTINE
     Dosage: 20 MILLIGRAM DAILY; (CAN BE DISSOLVED ON TONGUE, OR ...
     Route: 065
     Dates: start: 20200407
  7. LAXIDO [Concomitant]
     Active Substance: POLYETHYLENE GLYCOL 3350\POTASSIUM CHLORIDE\SODIUM BICARBONATE\SODIUM CHLORIDE
     Dosage: INCREASING AS REQUIRED, UNIT DOSE: 1 DOSAGE FORMS
     Dates: start: 20200522
  8. FEXOFENADINE [Concomitant]
     Active Substance: FEXOFENADINE HYDROCHLORIDE
     Dosage: 1 DOSAGE FORMS
     Dates: start: 20200630
  9. FLUOROURACIL. [Concomitant]
     Active Substance: FLUOROURACIL
     Dosage: FOR 3?4 WEEKS, UNIT DOSE: 1 DOSAGE FORMS
     Dates: start: 20200414, end: 20200512
  10. CETIRIZINE [Concomitant]
     Active Substance: CETIRIZINE HYDROCHLORIDE
     Indication: PRURITUS
     Dosage: 10 ML DAILY; NIGHT
     Dates: start: 20200407, end: 20200630

REACTIONS (3)
  - Glomerular filtration rate decreased [Unknown]
  - Hyperkalaemia [Unknown]
  - Product substitution issue [Unknown]

NARRATIVE: CASE EVENT DATE: 20200708
